FAERS Safety Report 8989599 (Version 1)
Quarter: 2012Q4

REPORT INFORMATION
  Report Type: 
  Country: US (occurrence: US)
  Receive Date: 20121228
  Receipt Date: 20121228
  Transmission Date: 20130627
  Serious: No
  Sender: FDA-Public Use
  Company Number: US-BIOGENIDEC-2012BI058166

PATIENT
  Sex: Female

DRUGS (12)
  1. AVONEX [Suspect]
     Indication: MULTIPLE SCLEROSIS
     Route: 030
  2. AVONEX [Suspect]
     Indication: MULTIPLE SCLEROSIS
     Route: 030
     Dates: start: 20001201
  3. AVONEX [Suspect]
     Indication: MULTIPLE SCLEROSIS
     Route: 030
     Dates: start: 20001209, end: 2003
  4. AVONEX [Suspect]
     Indication: MULTIPLE SCLEROSIS
     Route: 030
     Dates: start: 2003
  5. TRAMADOL [Concomitant]
     Indication: ARTHRALGIA
  6. TRAMADOL [Concomitant]
     Indication: PAIN IN EXTREMITY
  7. HYDROCODONE [Concomitant]
     Indication: ARTHRALGIA
  8. HYDROCODONE [Concomitant]
     Indication: PAIN IN EXTREMITY
  9. CODEINE [Concomitant]
     Indication: ARTHRALGIA
  10. CODEINE [Concomitant]
     Indication: PAIN IN EXTREMITY
  11. PILLS (NOS) [Concomitant]
     Indication: ANXIETY
  12. PILLS (NOS) [Concomitant]
     Indication: PANIC ATTACK

REACTIONS (12)
  - Amnesia [Not Recovered/Not Resolved]
  - Grief reaction [Not Recovered/Not Resolved]
  - Dry mouth [Not Recovered/Not Resolved]
  - Gingival bleeding [Not Recovered/Not Resolved]
  - Diabetes mellitus [Not Recovered/Not Resolved]
  - Contusion [Recovered/Resolved]
  - Abasia [Recovered/Resolved]
  - Thirst [Not Recovered/Not Resolved]
  - Panic attack [Unknown]
  - Anxiety [Unknown]
  - Influenza like illness [Recovered/Resolved]
  - Anxiety disorder [Not Recovered/Not Resolved]
